FAERS Safety Report 25051648 (Version 4)
Quarter: 2025Q1

REPORT INFORMATION
  Report Type: Report from Study
  Country: DE (occurrence: DE)
  Receive Date: 20250307
  Receipt Date: 20250328
  Transmission Date: 20250409
  Serious: Yes (Death, Hospitalization, Other)
  Sender: ALEXION PHARMACEUTICALS
  Company Number: DE-002147023-NVSC2025DE024731

PATIENT
  Weight: 69 kg

DRUGS (73)
  1. FULVESTRANT [Suspect]
     Active Substance: FULVESTRANT
     Indication: Hormone receptor positive HER2 negative breast cancer
     Dosage: 250 MG, QD (EVERY 2 WEEKS)
  2. FULVESTRANT [Suspect]
     Active Substance: FULVESTRANT
  3. LETROZOLE [Suspect]
     Active Substance: LETROZOLE
     Indication: Hormone receptor positive HER2 negative breast cancer
     Dosage: 2.5 MG, QD
  4. KISQALI [Suspect]
     Active Substance: RIBOCICLIB
     Indication: Hormone receptor positive HER2 negative breast cancer
     Dosage: 600 MG, QD (SCHEMA 21 DAYS INTAKE, 7 DAYS PAUSE)
  5. KISQALI [Suspect]
     Active Substance: RIBOCICLIB
     Indication: Hormone receptor positive HER2 negative breast cancer
     Dosage: 400 MG, QD (SCHEMA 21 DAYS INTAKE, 7 DAYS PAUSE)
  6. KISQALI [Suspect]
     Active Substance: RIBOCICLIB
     Route: 065
  7. KISQALI [Suspect]
     Active Substance: RIBOCICLIB
     Route: 065
  8. XGEVA [Concomitant]
     Active Substance: DENOSUMAB
     Indication: Product used for unknown indication
     Route: 065
  9. XGEVA [Concomitant]
     Active Substance: DENOSUMAB
     Route: 065
  10. XGEVA [Concomitant]
     Active Substance: DENOSUMAB
     Route: 065
  11. XGEVA [Concomitant]
     Active Substance: DENOSUMAB
     Route: 065
  12. XGEVA [Concomitant]
     Active Substance: DENOSUMAB
     Route: 065
  13. XGEVA [Concomitant]
     Active Substance: DENOSUMAB
     Route: 065
  14. XGEVA [Concomitant]
     Active Substance: DENOSUMAB
     Route: 065
  15. XGEVA [Concomitant]
     Active Substance: DENOSUMAB
     Dosage: 120 MG, Q4W
  16. XGEVA [Concomitant]
     Active Substance: DENOSUMAB
     Route: 065
  17. XGEVA [Concomitant]
     Active Substance: DENOSUMAB
     Route: 065
  18. XGEVA [Concomitant]
     Active Substance: DENOSUMAB
     Route: 065
  19. XGEVA [Concomitant]
     Active Substance: DENOSUMAB
     Route: 065
  20. XGEVA [Concomitant]
     Active Substance: DENOSUMAB
     Route: 065
  21. XGEVA [Concomitant]
     Active Substance: DENOSUMAB
     Route: 065
  22. XGEVA [Concomitant]
     Active Substance: DENOSUMAB
     Route: 065
  23. LEVOTHYROXINE [Concomitant]
     Active Substance: LEVOTHYROXINE
     Indication: Product used for unknown indication
     Route: 065
  24. LEVOTHYROXINE [Concomitant]
     Active Substance: LEVOTHYROXINE
     Route: 065
  25. LEVOTHYROXINE [Concomitant]
     Active Substance: LEVOTHYROXINE
     Route: 065
  26. LEVOTHYROXINE [Concomitant]
     Active Substance: LEVOTHYROXINE
     Route: 065
  27. LEVOTHYROXINE [Concomitant]
     Active Substance: LEVOTHYROXINE
     Route: 065
  28. LEVOTHYROXINE [Concomitant]
     Active Substance: LEVOTHYROXINE
     Route: 065
  29. LEVOTHYROXINE [Concomitant]
     Active Substance: LEVOTHYROXINE
     Dosage: 75 UG, QD
  30. LEVOTHYROXINE [Concomitant]
     Active Substance: LEVOTHYROXINE
     Route: 065
  31. LEVOTHYROXINE [Concomitant]
     Active Substance: LEVOTHYROXINE
     Route: 065
  32. LEVOTHYROXINE [Concomitant]
     Active Substance: LEVOTHYROXINE
     Route: 065
  33. RAMIPRIL [Concomitant]
     Active Substance: RAMIPRIL
     Indication: Product used for unknown indication
     Route: 065
  34. RAMIPRIL [Concomitant]
     Active Substance: RAMIPRIL
     Route: 065
  35. RAMIPRIL [Concomitant]
     Active Substance: RAMIPRIL
     Route: 065
  36. RAMIPRIL [Concomitant]
     Active Substance: RAMIPRIL
     Route: 065
  37. RAMIPRIL [Concomitant]
     Active Substance: RAMIPRIL
     Route: 065
  38. RAMIPRIL [Concomitant]
     Active Substance: RAMIPRIL
     Route: 065
  39. RAMIPRIL [Concomitant]
     Active Substance: RAMIPRIL
     Route: 065
  40. RAMIPRIL [Concomitant]
     Active Substance: RAMIPRIL
     Route: 065
  41. RAMIPRIL [Concomitant]
     Active Substance: RAMIPRIL
     Route: 065
  42. RAMIPRIL [Concomitant]
     Active Substance: RAMIPRIL
  43. RAMIPRIL [Concomitant]
     Active Substance: RAMIPRIL
     Route: 065
  44. RAMIPRIL [Concomitant]
     Active Substance: RAMIPRIL
     Route: 065
  45. RAMIPRIL [Concomitant]
     Active Substance: RAMIPRIL
     Route: 065
  46. RAMIPRIL [Concomitant]
     Active Substance: RAMIPRIL
     Route: 065
  47. RAMIPRIL [Concomitant]
     Active Substance: RAMIPRIL
     Route: 065
  48. RAMIPRIL [Concomitant]
     Active Substance: RAMIPRIL
     Route: 065
  49. RAMIPRIL [Concomitant]
     Active Substance: RAMIPRIL
     Route: 065
  50. RAMIPRIL [Concomitant]
     Active Substance: RAMIPRIL
     Route: 065
  51. RAMIPRIL [Concomitant]
     Active Substance: RAMIPRIL
     Route: 065
  52. RAMIPRIL [Concomitant]
     Active Substance: RAMIPRIL
     Route: 065
  53. RAMIPRIL [Concomitant]
     Active Substance: RAMIPRIL
     Route: 065
  54. RAMIPRIL [Concomitant]
     Active Substance: RAMIPRIL
     Route: 065
  55. RAMIPRIL [Concomitant]
     Active Substance: RAMIPRIL
  56. RAMIPRIL [Concomitant]
     Active Substance: RAMIPRIL
     Route: 065
  57. FASLODEX [Concomitant]
     Active Substance: FULVESTRANT
     Indication: Product used for unknown indication
     Route: 065
  58. FASLODEX [Concomitant]
     Active Substance: FULVESTRANT
     Route: 065
  59. FASLODEX [Concomitant]
     Active Substance: FULVESTRANT
     Route: 065
  60. FASLODEX [Concomitant]
     Active Substance: FULVESTRANT
     Route: 065
  61. FASLODEX [Concomitant]
     Active Substance: FULVESTRANT
     Route: 065
  62. FASLODEX [Concomitant]
     Active Substance: FULVESTRANT
     Route: 065
  63. FASLODEX [Concomitant]
     Active Substance: FULVESTRANT
     Route: 065
  64. FASLODEX [Concomitant]
     Active Substance: FULVESTRANT
  65. FASLODEX [Concomitant]
     Active Substance: FULVESTRANT
     Dosage: 500 MG, Q4W (SUBCUTANEOUS / INTRAMUSCULAR)
     Route: 065
  66. FASLODEX [Concomitant]
     Active Substance: FULVESTRANT
     Route: 065
  67. FASLODEX [Concomitant]
     Active Substance: FULVESTRANT
     Route: 065
  68. FASLODEX [Concomitant]
     Active Substance: FULVESTRANT
     Route: 065
  69. FASLODEX [Concomitant]
     Active Substance: FULVESTRANT
     Route: 065
  70. FASLODEX [Concomitant]
     Active Substance: FULVESTRANT
     Route: 065
  71. FASLODEX [Concomitant]
     Active Substance: FULVESTRANT
     Route: 065
  72. FASLODEX [Concomitant]
     Active Substance: FULVESTRANT
     Route: 065
  73. FASLODEX [Concomitant]
     Active Substance: FULVESTRANT
     Route: 065

REACTIONS (11)
  - Hepatic failure [Fatal]
  - Tumour invasion [Fatal]
  - Hyperbilirubinaemia [Fatal]
  - Jaundice [Fatal]
  - Chromaturia [Fatal]
  - Faeces discoloured [Fatal]
  - Nausea [Fatal]
  - Ascites [Fatal]
  - Fatigue [Fatal]
  - Muscle atrophy [Fatal]
  - Decreased appetite [Fatal]
